FAERS Safety Report 5317817-1 (Version None)
Quarter: 2007Q2

REPORT INFORMATION
  Report Type: 
  Country: None (occurrence: None)
  Receive Date: 20070502
  Receipt Date: 20070502
  Transmission Date: 20071010
  Serious: Yes (Disabling)
  Sender: FDA-Public Use
  Company Number: None

PATIENT
  Sex: Female
  Weight: 74 kg

DRUGS (1)
  1. ZOSYN [Suspect]
     Indication: PSEUDOMONAS INFECTION
     Dosage: 3.375G  Q6H   IV BOLUS
     Route: 040
     Dates: start: 20070409, end: 20070424

REACTIONS (2)
  - DOCUMENTED HYPERSENSITIVITY TO ADMINISTERED DRUG [None]
  - RASH GENERALISED [None]
